FAERS Safety Report 9438837 (Version 1)
Quarter: 2013Q3

REPORT INFORMATION
  Report Type: Spontaneous
  Country: IT (occurrence: IT)
  Receive Date: 20130802
  Receipt Date: 20130802
  Transmission Date: 20140515
  Serious: Yes (Hospitalization, Other)
  Sender: FDA-Public Use
  Company Number: IT-ELI_LILLY_AND_COMPANY-IT201307007199

PATIENT
  Age: 80 Year
  Sex: Female

DRUGS (6)
  1. FORSTEO [Suspect]
     Indication: OSTEOPOROSIS
     Dosage: 20 UG, QD
     Route: 058
     Dates: start: 20120707, end: 20130505
  2. ATORVASTATIN [Concomitant]
     Route: 048
  3. AGGRENOX [Concomitant]
     Route: 048
  4. ASACOL [Concomitant]
     Dosage: 800 MG, UNKNOWN
  5. PLAQUENIL [Concomitant]
     Route: 048
  6. DELTACORTENE [Concomitant]
     Dosage: 5 MG, UNKNOWN
     Route: 048

REACTIONS (3)
  - Renal failure chronic [Not Recovered/Not Resolved]
  - Nephrogenic anaemia [Not Recovered/Not Resolved]
  - Hypothyroidism [Not Recovered/Not Resolved]
